FAERS Safety Report 5937454-5 (Version None)
Quarter: 2008Q4

REPORT INFORMATION
  Report Type: 
  Country: None (occurrence: None)
  Receive Date: 20081031
  Receipt Date: 20081027
  Transmission Date: 20090506
  Serious: Yes (Hospitalization)
  Sender: FDA-Public Use
  Company Number: B0537606A

PATIENT
  Age: 23 Year
  Sex: Male

DRUGS (4)
  1. VALACYCLOVIR HCL [Suspect]
     Indication: HERPES VIRUS INFECTION
     Dosage: 1000MG THREE TIMES PER DAY
     Route: 048
     Dates: start: 20040605, end: 20040607
  2. CLARITHROMYCIN [Suspect]
     Route: 048
     Dates: start: 20040607, end: 20040612
  3. TOSUFLOXACIN TOSILATE [Concomitant]
     Route: 065
     Dates: start: 20040602
  4. LOXOPROFEN [Concomitant]
     Route: 048
     Dates: start: 20040602

REACTIONS (9)
  - BODY TEMPERATURE INCREASED [None]
  - C-REACTIVE PROTEIN INCREASED [None]
  - DISSEMINATED CRYPTOCOCCOSIS [None]
  - EOSINOPHILIA [None]
  - HEPATIC ENZYME INCREASED [None]
  - HYPOXIA [None]
  - LYMPHADENOPATHY [None]
  - RED BLOOD CELL SEDIMENTATION RATE INCREASED [None]
  - WHITE BLOOD CELL COUNT INCREASED [None]
